FAERS Safety Report 4727034-1 (Version None)
Quarter: 2005Q3

REPORT INFORMATION
  Report Type: 
  Country: None (occurrence: None)
  Receive Date: 20050726
  Receipt Date: 20050726
  Transmission Date: 20060218
  Serious: Yes (Other)
  Sender: FDA-Public Use
  Company Number: None

PATIENT
  Sex: Male
  Weight: 85.2762 kg

DRUGS (5)
  1. ZETIA [Suspect]
     Indication: HYPERLIPIDAEMIA
     Dosage: 10 MG ONCE A DAY ORAL
     Route: 048
     Dates: start: 20050301, end: 20050620
  2. ZOCOR [Suspect]
     Dosage: 40 MG ONCE A DAY ORAL
     Route: 048
     Dates: start: 20010301, end: 20050514
  3. PLAVIX [Concomitant]
  4. TOPROL-XL [Concomitant]
  5. ASPIRIN [Concomitant]

REACTIONS (3)
  - ASTHENIA [None]
  - HYPOGLYCAEMIA [None]
  - TREMOR [None]
